FAERS Safety Report 11318412 (Version 2)
Quarter: 2015Q3

REPORT INFORMATION
  Report Type: Spontaneous
  Country: DE (occurrence: DE)
  Receive Date: 20150728
  Receipt Date: 20150730
  Transmission Date: 20151125
  Serious: Yes (Hospitalization)
  Sender: FDA-Public Use
  Company Number: DE-EMD SERONO-8033205

PATIENT
  Age: 31 Year
  Sex: Female

DRUGS (1)
  1. REBIF [Suspect]
     Active Substance: INTERFERON BETA-1A
     Indication: RELAPSING-REMITTING MULTIPLE SCLEROSIS
     Dosage: STARTER KIT
     Route: 058
     Dates: start: 20150401, end: 20150430

REACTIONS (12)
  - Skin reaction [Recovering/Resolving]
  - Chromaturia [Unknown]
  - Depression [Unknown]
  - Nausea [Unknown]
  - Transaminases increased [Not Recovered/Not Resolved]
  - Adverse drug reaction [Recovering/Resolving]
  - Fatigue [Unknown]
  - Drug tolerance decreased [Unknown]
  - Drug-induced liver injury [Recovering/Resolving]
  - Blood bilirubin increased [Not Recovered/Not Resolved]
  - Migraine [Unknown]
  - Malaise [Unknown]

NARRATIVE: CASE EVENT DATE: 20150430
